FAERS Safety Report 14573992 (Version 3)
Quarter: 2018Q3

REPORT INFORMATION
  Report Type: Spontaneous
  Country: JP (occurrence: JP)
  Receive Date: 20180226
  Receipt Date: 20180802
  Transmission Date: 20181010
  Serious: Yes (Life-Threatening, Hospitalization, Other)
  Sender: FDA-Public Use
  Company Number: JP-PFIZER INC-2018077579

PATIENT
  Age: 65 Year
  Sex: Female

DRUGS (20)
  1. HYDROCORTISONE SODIUM SUCCINATE [Suspect]
     Active Substance: HYDROCORTISONE SODIUM SUCCINATE
     Dosage: 50 MG, UNK, (PODS 3 AND 4)
     Route: 042
  2. HYDROCORTISONE SODIUM SUCCINATE [Suspect]
     Active Substance: HYDROCORTISONE SODIUM SUCCINATE
     Dosage: 50 MG, UNK, (ENTERALLY FROM PODS 5 TO 8)
  3. HYDROCORTISONE SODIUM SUCCINATE [Suspect]
     Active Substance: HYDROCORTISONE SODIUM SUCCINATE
     Dosage: 30 MG, UNK, (SINCE POD 9)
  4. HYDROCORTISONE SODIUM SUCCINATE [Suspect]
     Active Substance: HYDROCORTISONE SODIUM SUCCINATE
     Indication: CUSHING^S SYNDROME
     Dosage: 100 MG, UNK, (ON POSTOPERATIVE DAY 2)
     Route: 042
  5. HYDROCORTISONE SODIUM SUCCINATE [Suspect]
     Active Substance: HYDROCORTISONE SODIUM SUCCINATE
     Dosage: 15 MG, UNK, (FROM POD 29)
  6. FUROSEMIDE. [Concomitant]
     Active Substance: FUROSEMIDE
     Indication: HYPERTENSION
     Dosage: 40 MG, UNK
  7. METYRAPONE [Concomitant]
     Active Substance: METYRAPONE
     Indication: ECTOPIC ACTH SYNDROME
     Dosage: UNK
     Route: 048
  8. HEPARIN SODIUM. [Concomitant]
     Active Substance: HEPARIN SODIUM
     Dosage: 10000 IU, UNK (PERIOPERATIVE PERIOD)
     Route: 042
  9. AMLODIPINE [Concomitant]
     Active Substance: AMLODIPINE BESYLATE
     Indication: HYPERTENSION
     Dosage: 5 MG, UNK
  10. GLIMEPIRIDE. [Concomitant]
     Active Substance: GLIMEPIRIDE
     Indication: DIABETES MELLITUS
     Dosage: 1 MG, UNK
     Route: 048
  11. SPIRONOLACTONE. [Concomitant]
     Active Substance: SPIRONOLACTONE
     Indication: HYPERTENSION
     Dosage: 25 MG, UNK
  12. VILDAGLIPTIN [Concomitant]
     Active Substance: VILDAGLIPTIN
     Indication: DIABETES MELLITUS
     Dosage: 100 MG, UNK
     Route: 048
  13. WARFARIN POTASSIUM [Concomitant]
     Active Substance: WARFARIN POTASSIUM
     Indication: ATRIAL FIBRILLATION
     Dosage: UNK
  14. HYDROCORTISONE SODIUM SUCCINATE [Suspect]
     Active Substance: HYDROCORTISONE SODIUM SUCCINATE
     Indication: HORMONE REPLACEMENT THERAPY
     Dosage: 200 MG, UNK, (ON THE DAY OF THE OPERATION AND ON POSTOPERATIVE DAY (POD) 1
     Route: 042
  15. PIOGLITAZONE. [Concomitant]
     Active Substance: PIOGLITAZONE
     Indication: DIABETES MELLITUS
     Dosage: 15 MG, UNK
     Route: 048
  16. WARFARIN POTASSIUM [Concomitant]
     Active Substance: WARFARIN POTASSIUM
     Indication: HEPATIC INFARCTION
  17. HEPARIN SODIUM. [Concomitant]
     Active Substance: HEPARIN SODIUM
     Dosage: 15000 UNK, UNK
     Route: 042
  18. BISOPROLOL [Concomitant]
     Active Substance: BISOPROLOL
     Indication: HYPERTENSION
     Dosage: 5 MG, UNK
  19. TELMISARTAN. [Concomitant]
     Active Substance: TELMISARTAN
     Indication: HYPERTENSION
     Dosage: 40 MG, UNK
  20. MITOTANE [Concomitant]
     Active Substance: MITOTANE
     Indication: ECTOPIC ACTH SYNDROME
     Dosage: UNK
     Route: 048

REACTIONS (8)
  - Embolism [Unknown]
  - Shock [Unknown]
  - Gastrointestinal necrosis [Unknown]
  - Withdrawal syndrome [Unknown]
  - Sinus tachycardia [Unknown]
  - Intestinal ischaemia [Unknown]
  - Hepatic infarction [Unknown]
  - Haemorrhagic infarction [Unknown]
